FAERS Safety Report 21693988 (Version 1)
Quarter: 2022Q4

REPORT INFORMATION
  Report Type: Report from Study
  Country: BR (occurrence: BR)
  Receive Date: 20221207
  Receipt Date: 20221207
  Transmission Date: 20230113
  Serious: Yes (Other)
  Sender: FDA-Public Use
  Company Number: BR-002147023-NVSC2022BR282437

PATIENT
  Age: 70 Year
  Sex: Female

DRUGS (5)
  1. BRINZOLAMIDE\TIMOLOL MALEATE [Suspect]
     Active Substance: BRINZOLAMIDE\TIMOLOL MALEATE
     Indication: Product used for unknown indication
     Dosage: UNK
     Route: 065
  2. SIMBRINZA [Suspect]
     Active Substance: BRIMONIDINE TARTRATE\BRINZOLAMIDE
     Indication: Product used for unknown indication
     Dosage: UNK
     Route: 065
  3. DIOVAN HCT [Suspect]
     Active Substance: HYDROCHLOROTHIAZIDE\VALSARTAN
     Indication: Product used for unknown indication
     Dosage: UNK UNK, QD (IN THE MORNING)
     Route: 065
  4. DIOVAN [Suspect]
     Active Substance: VALSARTAN
     Indication: Intraocular pressure test abnormal
     Dosage: 160 MG, QD  (AT NIGHT)
     Route: 065
  5. LUMIGAN [Concomitant]
     Active Substance: BIMATOPROST
     Indication: Product used for unknown indication
     Dosage: UNK
     Route: 065

REACTIONS (9)
  - Cataract [Recovering/Resolving]
  - Blindness [Recovering/Resolving]
  - Blood pressure decreased [Recovering/Resolving]
  - Visual impairment [Recovering/Resolving]
  - Hypersensitivity [Recovering/Resolving]
  - Eye irritation [Recovered/Resolved]
  - Eye pruritus [Recovered/Resolved]
  - Ocular hyperaemia [Recovering/Resolving]
  - Ocular discomfort [Recovering/Resolving]
